FAERS Safety Report 7583831-9 (Version None)
Quarter: 2011Q2

REPORT INFORMATION
  Report Type: 
  Country: None (occurrence: None)
  Receive Date: 20110630
  Receipt Date: 20110627
  Transmission Date: 20111010
  Serious: Yes (Hospitalization)
  Sender: FDA-Public Use
  Company Number: IT-ROCHE-786204

PATIENT

DRUGS (6)
  1. FLUOROURACIL [Concomitant]
     Route: 042
     Dates: start: 20110207, end: 20110329
  2. DALTEPARIN SODIUM [Concomitant]
     Route: 058
     Dates: start: 20110104, end: 20110411
  3. BEVACIZUMAB [Suspect]
     Dosage: FREQ:  CYCLE
     Route: 042
     Dates: start: 20110208, end: 20110329
  4. LEUCOVORIN CALCIUM [Concomitant]
     Route: 042
     Dates: start: 20110207, end: 20110329
  5. OMEPRAZOLE [Concomitant]
     Route: 048
     Dates: start: 20110110, end: 20110411
  6. IRINOTECAN HYDROCHLORIDE [Concomitant]
     Route: 042
     Dates: start: 20110207, end: 20110328

REACTIONS (3)
  - DIARRHOEA [None]
  - MUCOSAL INFLAMMATION [None]
  - INTESTINAL OBSTRUCTION [None]
